FAERS Safety Report 15075466 (Version 1)
Quarter: 2018Q3

REPORT INFORMATION
  Report Type: Spontaneous
  Country: US (occurrence: US)
  Receive Date: 20180627
  Receipt Date: 20180627
  Transmission Date: 20181010
  Serious: No
  Sender: FDA-Public Use
  Company Number: US-SAOL THERAPEUTICS-2018SAO00252

PATIENT
  Age: 43 Year
  Sex: Male
  Weight: 57.6 kg

DRUGS (5)
  1. UNSPECIFIED ORAL MEDICATIONS [Suspect]
     Active Substance: UNSPECIFIED INGREDIENT
  2. BACLOFEN. [Suspect]
     Active Substance: BACLOFEN
     Indication: CRANIOCEREBRAL INJURY
  3. BACLOFEN. [Suspect]
     Active Substance: BACLOFEN
     Indication: MUSCLE SPASTICITY
     Dosage: 484.5 ?G, \DAY
     Route: 037
  4. BACLOFEN. [Suspect]
     Active Substance: BACLOFEN
     Indication: CRANIOCEREBRAL INJURY
  5. BACLOFEN. [Suspect]
     Active Substance: BACLOFEN
     Indication: MUSCLE SPASTICITY
     Dosage: 900 ?G, \DAY
     Route: 037

REACTIONS (7)
  - Back disorder [Not Recovered/Not Resolved]
  - Extremity contracture [Not Recovered/Not Resolved]
  - Muscle spasticity [Not Recovered/Not Resolved]
  - Unevaluable event [Unknown]
  - Therapy non-responder [Not Recovered/Not Resolved]
  - Lethargy [Unknown]
  - Drug intolerance [None]

NARRATIVE: CASE EVENT DATE: 20041206
